FAERS Safety Report 13050544 (Version 1)
Quarter: 2016Q4

REPORT INFORMATION
  Report Type: Report from Study
  Country: SI (occurrence: SI)
  Receive Date: 20161221
  Receipt Date: 20161221
  Transmission Date: 20170207
  Serious: Yes (Other)
  Sender: FDA-Public Use
  Company Number: SI-TEVA-721730ISR

PATIENT

DRUGS (2)
  1. ULTRAVIST [Suspect]
     Active Substance: IOPROMIDE
     Indication: HEPATOCELLULAR CARCINOMA
     Dosage: 370 MG/ML; INJECTION RATE WAS 5ML/S WITH A TOTAL OF 20ML INJECTED
     Route: 065
  2. DOXORUBICIN [Suspect]
     Active Substance: DOXORUBICIN
     Indication: HEPATOCELLULAR CARCINOMA
     Dosage: 50MG/ VIAL; MAXIMUM DOSE OF 100MG
     Route: 050

REACTIONS (1)
  - Cerebral ischaemia [Unknown]
